FAERS Safety Report 5774767-4 (Version None)
Quarter: 2008Q2

REPORT INFORMATION
  Report Type: 
  Country: None (occurrence: None)
  Receive Date: 20080616
  Receipt Date: 20080616
  Transmission Date: 20081010
  Serious: Yes (Other)
  Sender: FDA-Public Use
  Company Number: None

PATIENT
  Age: 65 Year
  Sex: Female
  Weight: 73.0291 kg

DRUGS (3)
  1. LYRICA [Suspect]
     Indication: FIBROMYALGIA
     Dosage: 50MG 1 DAY FOR 5 DAYS THEN 2 DAYS 5 DAYS THEN 3X DAY
     Dates: start: 20080523
  2. LYRICA [Suspect]
     Indication: FIBROMYALGIA
     Dosage: 50MG 1 DAY FOR 5 DAYS THEN 2 DAYS 5 DAYS THEN 3X DAY
     Dates: start: 20080524
  3. LITHIUM CARBONATE [Concomitant]

REACTIONS (6)
  - BIPOLAR DISORDER [None]
  - FLIGHT OF IDEAS [None]
  - GRANDIOSITY [None]
  - INSOMNIA [None]
  - JUDGEMENT IMPAIRED [None]
  - MANIA [None]
